FAERS Safety Report 22810996 (Version 3)
Quarter: 2025Q2

REPORT INFORMATION
  Report Type: Spontaneous
  Country: US (occurrence: US)
  Receive Date: 20230810
  Receipt Date: 20250510
  Transmission Date: 20250717
  Serious: No
  Sender: SANOFI AVENTIS
  Company Number: US-SA-SAC20230809001027

PATIENT
  Sex: Male
  Weight: 101.73 kg

DRUGS (4)
  1. DUPIXENT [Suspect]
     Active Substance: DUPILUMAB
     Indication: Dermatitis atopic
     Dosage: 300 MG QOW
     Route: 058
     Dates: start: 20201022
  2. DUPIXENT [Suspect]
     Active Substance: DUPILUMAB
     Indication: Dermatitis atopic
     Dosage: 300 MG, QOW
     Route: 058
     Dates: start: 20201022
  3. DUPIXENT [Suspect]
     Active Substance: DUPILUMAB
     Indication: Dermatitis allergic
  4. RINVOQ [Concomitant]
     Active Substance: UPADACITINIB
     Indication: Arthritis

REACTIONS (5)
  - Anger [Unknown]
  - Nausea [Recovered/Resolved]
  - Depression [Recovered/Resolved]
  - Therapeutic product effect decreased [Unknown]
  - Drug effective for unapproved indication [Unknown]
